FAERS Safety Report 7517283-1 (Version None)
Quarter: 2011Q2

REPORT INFORMATION
  Report Type: 
  Country: None (occurrence: None)
  Receive Date: 20110601
  Receipt Date: 20110524
  Transmission Date: 20111010
  Serious: Yes (Other)
  Sender: FDA-Public Use
  Company Number: GB-ELI_LILLY_AND_COMPANY-GB201105006593

PATIENT
  Age: 58 Year
  Sex: Female
  Weight: 132 kg

DRUGS (4)
  1. SIMVASTATIN [Concomitant]
  2. BYETTA [Suspect]
     Dosage: UNK
     Route: 058
     Dates: start: 20091211
  3. METFORMIN HCL [Concomitant]
  4. PANDEMRIX [Concomitant]
     Dosage: UNK
     Route: 058
     Dates: start: 20091212

REACTIONS (3)
  - ALLERGY TO VACCINE [None]
  - MALAISE [None]
  - PAIN IN EXTREMITY [None]
